FAERS Safety Report 9941349 (Version 1)
Quarter: 2014Q1

REPORT INFORMATION
  Report Type: Report from Study
  Country: US (occurrence: US)
  Receive Date: 20140303
  Receipt Date: 20140303
  Transmission Date: 20141002
  Serious: No
  Sender: FDA-Public Use
  Company Number: US-ABBVIE-13P-163-1041595-00

PATIENT
  Age: 55 Year
  Sex: Female

DRUGS (11)
  1. HUMIRA [Suspect]
     Indication: RHEUMATOID ARTHRITIS
  2. METHOTREXATE [Concomitant]
     Indication: RHEUMATOID ARTHRITIS
     Dosage: 14 MG WEEKLY
     Route: 048
  3. BISOPROLOL HCTZ [Concomitant]
     Indication: PRODUCT USED FOR UNKNOWN INDICATION
     Dosage: 2.5/6.35 MG ONCE DAILY
     Route: 048
  4. LEVOXYL [Concomitant]
     Indication: HYPOTHYROIDISM
     Route: 048
  5. SOMA [Concomitant]
     Indication: BACK PAIN
     Dosage: 350 MG X 2 AT BEDTIME
  6. KLONOPIN [Concomitant]
     Indication: RESTLESS LEGS SYNDROME
     Dosage: AT BEDTIME
     Route: 048
  7. CYMBALTA [Concomitant]
     Indication: DEPRESSION
     Route: 048
  8. NEXIUM [Concomitant]
     Indication: GASTROOESOPHAGEAL REFLUX DISEASE
     Route: 048
  9. VYTORIN [Concomitant]
     Indication: BLOOD CHOLESTEROL INCREASED
     Dosage: 10/40 MG ONE AT BEDTIME
     Route: 048
  10. AMBIEN [Concomitant]
     Indication: INSOMNIA
     Dosage: AT BEDTIME
     Route: 048
  11. ASA [Concomitant]
     Indication: CARDIOVASCULAR EVENT PROPHYLAXIS
     Route: 048

REACTIONS (2)
  - Joint swelling [Not Recovered/Not Resolved]
  - Arthralgia [Not Recovered/Not Resolved]
